FAERS Safety Report 8491012-X (Version None)
Quarter: 2012Q3

REPORT INFORMATION
  Report Type: 
  Country: None (occurrence: None)
  Receive Date: 20120706
  Receipt Date: 20120629
  Transmission Date: 20120928
  Serious: Yes (Death, Hospitalization)
  Sender: FDA-Public Use
  Company Number: US-CELGENEUS-163-21880-12032075

PATIENT

DRUGS (3)
  1. DEXAMETHASONE [Suspect]
     Route: 065
  2. REVLIMID [Suspect]
     Route: 048
  3. VELCADE [Suspect]
     Route: 065

REACTIONS (6)
  - RENAL FAILURE ACUTE [None]
  - DEHYDRATION [None]
  - DEATH [None]
  - MENTAL STATUS CHANGES [None]
  - HYPOTENSION [None]
  - CLOSTRIDIAL INFECTION [None]
